FAERS Safety Report 10057565 (Version 1)
Quarter: 2014Q2

REPORT INFORMATION
  Report Type: Spontaneous
  Country: JP (occurrence: JP)
  Receive Date: 20140404
  Receipt Date: 20140404
  Transmission Date: 20141212
  Serious: Yes (Death)
  Sender: FDA-Public Use
  Company Number: JP-MERCK-1403JPN014585

PATIENT
  Age: 37 Year
  Sex: Male

DRUGS (6)
  1. DEXAMETHASONE [Suspect]
     Indication: PYREXIA
     Dosage: DAILY DOSAGE OF 20 MG
  2. FLUDARABINE PHOSPHATE [Concomitant]
     Indication: CORD BLOOD TRANSPLANT THERAPY
     Route: 065
  3. MELPHALAN [Concomitant]
     Indication: CORD BLOOD TRANSPLANT THERAPY
     Route: 065
  4. DORIPENEM [Concomitant]
     Indication: PYREXIA
     Route: 041
  5. VANCOMYCIN [Concomitant]
     Indication: PYREXIA
     Route: 065
  6. FLUCONAZOLE [Concomitant]
     Indication: PYREXIA
     Route: 065

REACTIONS (1)
  - Stenotrophomonas infection [Fatal]
